FAERS Safety Report 17882771 (Version 1)
Quarter: 2020Q2

REPORT INFORMATION
  Report Type: Spontaneous
  Country: US (occurrence: US)
  Receive Date: 20200610
  Receipt Date: 20200610
  Transmission Date: 20200714
  Serious: Yes (Other)
  Sender: FDA-Public Use
  Company Number: US-GILEAD-2020-0469821

PATIENT
  Age: 76 Year
  Sex: Female
  Weight: 62 kg

DRUGS (6)
  1. REMDESIVIR. [Suspect]
     Active Substance: REMDESIVIR
     Indication: COVID-19
     Dosage: 200MG X1, 100MG X 1
     Route: 042
     Dates: start: 20200523, end: 20200524
  2. AMIODARONE [Concomitant]
     Active Substance: AMIODARONE
  3. LEVOTHYROXINE. [Suspect]
     Active Substance: LEVOTHYROXINE
     Indication: PRODUCT USED FOR UNKNOWN INDICATION
     Route: 065
  4. REMDESIVIR. [Suspect]
     Active Substance: REMDESIVIR
     Dosage: 100 MG, DAILY X3
     Route: 042
     Dates: start: 20200525, end: 20200527
  5. LEVOFLOXACIN. [Suspect]
     Active Substance: LEVOFLOXACIN
     Indication: PRODUCT USED FOR UNKNOWN INDICATION
     Route: 065
  6. METRONIDAZOLE. [Concomitant]
     Active Substance: METRONIDAZOLE

REACTIONS (7)
  - Atrial flutter [Unknown]
  - Ejection fraction [Unknown]
  - Atrial fibrillation [Unknown]
  - Hypotension [Unknown]
  - Arrhythmia supraventricular [Unknown]
  - Heart rate increased [Unknown]
  - Ischaemia [Unknown]

NARRATIVE: CASE EVENT DATE: 20200526
